FAERS Safety Report 13360178 (Version 1)
Quarter: 2017Q1

REPORT INFORMATION
  Report Type: Spontaneous
  Country: US (occurrence: US)
  Receive Date: 20170322
  Receipt Date: 20170322
  Transmission Date: 20170429
  Serious: No
  Sender: FDA-Public Use
  Company Number: US-AMNEAL PHARMACEUTICALS-2017AMN00059

PATIENT
  Sex: Female
  Weight: 58.5 kg

DRUGS (1)
  1. ESTRADIOL. [Suspect]
     Active Substance: ESTRADIOL
     Indication: ATROPHIC VULVOVAGINITIS
     Dosage: 1 MCG, 3X/WEEK
     Dates: start: 20170201, end: 20170206

REACTIONS (6)
  - Vulvovaginal burning sensation [Recovered/Resolved]
  - Vulvovaginal pruritus [Recovered/Resolved]
  - Product substitution issue [Recovered/Resolved]
  - Hypersensitivity [Recovered/Resolved]
  - Vulvovaginal pain [Recovered/Resolved]
  - Drug ineffective [Recovered/Resolved]
